FAERS Safety Report 13010365 (Version 3)
Quarter: 2017Q2

REPORT INFORMATION
  Report Type: Spontaneous
  Country: US (occurrence: US)
  Receive Date: 20161208
  Receipt Date: 20170622
  Transmission Date: 20170830
  Serious: No
  Sender: FDA-Public Use
  Company Number: US-PFIZER INC-2016559836

PATIENT
  Sex: Female

DRUGS (1)
  1. XELJANZ XR [Suspect]
     Active Substance: TOFACITINIB CITRATE
     Dosage: 11 MG, UNK

REACTIONS (5)
  - Insomnia [Unknown]
  - Arthralgia [Recovering/Resolving]
  - Anxiety [Unknown]
  - Stress [Not Recovered/Not Resolved]
  - Musculoskeletal stiffness [Recovering/Resolving]
